FAERS Safety Report 6232019-2 (Version None)
Quarter: 2009Q2

REPORT INFORMATION
  Report Type: 
  Country: None (occurrence: None)
  Receive Date: 20090616
  Receipt Date: 20090608
  Transmission Date: 20091009
  Serious: Yes (Other)
  Sender: FDA-Public Use
  Company Number: GB-GILEAD-2009-0022484

PATIENT
  Age: 25 Year
  Sex: Male

DRUGS (1)
  1. TRUVADA [Suspect]
     Indication: DRUG USE FOR UNKNOWN INDICATION

REACTIONS (1)
  - FRACTURE [None]
